FAERS Safety Report 8025418-X (Version None)
Quarter: 2012Q1

REPORT INFORMATION
  Report Type: 
  Country: None (occurrence: None)
  Receive Date: 20120105
  Receipt Date: 20111229
  Transmission Date: 20120608
  Serious: Yes (Other)
  Sender: FDA-Public Use
  Company Number: CHPA2011US018747

PATIENT
  Age: 30 Year
  Sex: Female

DRUGS (3)
  1. EXCEDRIN (MIGRAINE) [Suspect]
     Indication: HEADACHE
     Dosage: 6 DF, QD
     Route: 048
     Dates: start: 20111225
  2. ZANTAC [Concomitant]
     Indication: VOMITING
     Dosage: UNK DF, UNK
  3. ACETAMINOPHEN [Concomitant]
     Indication: HEADACHE
     Dosage: UNK DF, UNK

REACTIONS (4)
  - SYNCOPE [None]
  - OVERDOSE [None]
  - PAIN [None]
  - ASTHENIA [None]
